FAERS Safety Report 12216548 (Version 2)
Quarter: 2016Q2

REPORT INFORMATION
  Report Type: Spontaneous
  Country: FR (occurrence: FR)
  Receive Date: 20160329
  Receipt Date: 20160518
  Transmission Date: 20160815
  Serious: Yes (Congenital Anomaly)
  Sender: FDA-Public Use
  Company Number: FR-ROCHE-1732066

PATIENT
  Age: 0 Year
  Sex: Male

DRUGS (2)
  1. METHOTREXATE [Suspect]
     Active Substance: METHOTREXATE
     Indication: RHEUMATOID ARTHRITIS
     Route: 064
     Dates: start: 201409, end: 20150316
  2. ROACTEMRA [Suspect]
     Active Substance: TOCILIZUMAB
     Indication: PRODUCT USED FOR UNKNOWN INDICATION
     Route: 064
     Dates: start: 201409, end: 20150317

REACTIONS (3)
  - Congenital hand malformation [Recovered/Resolved with Sequelae]
  - Foetal exposure during pregnancy [Unknown]
  - Growth retardation [Recovering/Resolving]

NARRATIVE: CASE EVENT DATE: 20151008
